FAERS Safety Report 25941630 (Version 1)
Quarter: 2025Q4

REPORT INFORMATION
  Report Type: Report from Study
  Country: US (occurrence: US)
  Receive Date: 20251020
  Receipt Date: 20251020
  Transmission Date: 20260117
  Serious: Yes (Other)
  Sender: ABBVIE
  Company Number: US-ABBVIE-6508114

PATIENT
  Age: 78 Year
  Sex: Male

DRUGS (1)
  1. SKYRIZI [Suspect]
     Active Substance: RISANKIZUMAB-RZAA
     Indication: Colitis ulcerative
     Route: 058
     Dates: start: 20250606

REACTIONS (4)
  - Loss of consciousness [Recovered/Resolved]
  - Heart rate decreased [Recovered/Resolved]
  - Pulmonary mass [Not Recovered/Not Resolved]
  - Pneumonia fungal [Not Recovered/Not Resolved]

NARRATIVE: CASE EVENT DATE: 20251001
